FAERS Safety Report 9459550 (Version 2)
Quarter: 2013Q3

REPORT INFORMATION
  Report Type: Spontaneous
  Country: US (occurrence: US)
  Receive Date: 20130815
  Receipt Date: 20130905
  Transmission Date: 20140515
  Serious: No
  Sender: FDA-Public Use
  Company Number: US-PFIZER INC-2013233172

PATIENT
  Age: 81 Year
  Sex: Male
  Weight: 82.99 kg

DRUGS (1)
  1. SUTENT [Suspect]
     Indication: RENAL CELL CARCINOMA STAGE IV
     Dosage: 50 MG, 1X/DAY
     Dates: start: 20130801

REACTIONS (2)
  - Gout [Unknown]
  - Pain in extremity [Unknown]
